FAERS Safety Report 6521155-9 (Version None)
Quarter: 2009Q4

REPORT INFORMATION
  Report Type: 
  Country: None (occurrence: None)
  Receive Date: 20091222
  Receipt Date: 20091208
  Transmission Date: 20100525
  Serious: Yes (Other)
  Sender: FDA-Public Use
  Company Number: 2009AP004983

PATIENT
  Age: 10 Year
  Sex: Male

DRUGS (20)
  1. CYCLOSPORINE [Suspect]
     Indication: IMMUNOSUPPRESSION
  2. CYCLOSPORINE [Suspect]
     Indication: PROPHYLAXIS AGAINST GRAFT VERSUS HOST DISEASE
  3. METHYLPREDNISOLONE [Suspect]
     Indication: IMMUNOSUPPRESSION
  4. METHYLPREDNISOLONE [Suspect]
     Indication: PROPHYLAXIS AGAINST GRAFT VERSUS HOST DISEASE
  5. ANTI-THYMOCYTE GLOBULIN NOS [Suspect]
     Indication: IMMUNOSUPPRESSION
  6. ANTI-THYMOCYTE GLOBULIN NOS [Suspect]
     Indication: PROPHYLAXIS AGAINST GRAFT VERSUS HOST DISEASE
  7. PREDNISONE [Suspect]
     Indication: IMMUNOSUPPRESSION
  8. PREDNISONE [Suspect]
     Indication: PROPHYLAXIS AGAINST GRAFT VERSUS HOST DISEASE
  9. MYCOPHENOLATE MOFETIL [Suspect]
     Indication: GRAFT VERSUS HOST DISEASE
  10. MYCOPHENOLATE MOFETIL [Suspect]
     Indication: IMMUNOSUPPRESSION
  11. TACROLIMUS [Suspect]
     Indication: GRAFT VERSUS HOST DISEASE
  12. TACROLIMUS [Suspect]
     Indication: IMMUNOSUPPRESSION
  13. INFLIXIMAB [Suspect]
     Indication: GRAFT VERSUS HOST DISEASE
  14. INFLIXIMAB [Suspect]
     Indication: IMMUNOSUPPRESSION
  15. CORTICOSTEROIDS [Concomitant]
  16. RIFABUTIN [Concomitant]
  17. GATIFLOXACIN [Concomitant]
  18. CLARITHROMYCIN [Concomitant]
  19. GEMFIBROZIL [Concomitant]
  20. OMEPRAZOLE [Concomitant]

REACTIONS (13)
  - ADENOVIRUS INFECTION [None]
  - ADRENAL INSUFFICIENCY [None]
  - BACTERIAL INFECTION [None]
  - CHRONIC GRAFT VERSUS HOST DISEASE [None]
  - GROWTH HORMONE DEFICIENCY [None]
  - HYPERTENSION [None]
  - HYPOTHYROIDISM [None]
  - MYCOBACTERIAL INFECTION [None]
  - POLYOMAVIRUS-ASSOCIATED NEPHROPATHY [None]
  - PYELOCALIECTASIS [None]
  - RENAL CYST [None]
  - RENAL IMPAIRMENT [None]
  - VIRAL INFECTION [None]
